FAERS Safety Report 12190719 (Version 1)
Quarter: 2016Q1

REPORT INFORMATION
  Report Type: Spontaneous
  Country: US (occurrence: US)
  Receive Date: 20160318
  Receipt Date: 20160318
  Transmission Date: 20160526
  Serious: Yes (Other)
  Sender: FDA-Public Use
  Company Number: US-CELGENEUS-USA-2016033473

PATIENT
  Age: 63 Year
  Sex: Male

DRUGS (11)
  1. REVLIMID [Suspect]
     Active Substance: LENALIDOMIDE
     Indication: PLASMA CELL MYELOMA
     Route: 048
     Dates: start: 200608
  2. REVLIMID [Suspect]
     Active Substance: LENALIDOMIDE
     Dosage: 10-20 MG
     Route: 048
     Dates: start: 200609
  3. REVLIMID [Suspect]
     Active Substance: LENALIDOMIDE
     Route: 048
     Dates: start: 201507
  4. REVLIMID [Suspect]
     Active Substance: LENALIDOMIDE
     Dosage: 50- 25 MG
     Route: 048
     Dates: start: 201211
  5. REVLIMID [Suspect]
     Active Substance: LENALIDOMIDE
     Dosage: 50-10 MG
     Route: 048
     Dates: start: 200901
  6. REVLIMID [Suspect]
     Active Substance: LENALIDOMIDE
     Dosage: 25 - 10 MG
     Route: 048
     Dates: start: 200903
  7. REVLIMID [Suspect]
     Active Substance: LENALIDOMIDE
     Route: 048
     Dates: start: 201506
  8. ZOMETA [Concomitant]
     Active Substance: ZOLEDRONIC ACID
     Indication: MULTIPLE FRACTURES
     Route: 065
  9. REVLIMID [Suspect]
     Active Substance: LENALIDOMIDE
     Dosage: 25-10 MG
     Route: 048
     Dates: start: 200611
  10. REVLIMID [Suspect]
     Active Substance: LENALIDOMIDE
     Dosage: 20- 25 MG
     Route: 048
     Dates: start: 201112
  11. DEXAMETHASONE. [Suspect]
     Active Substance: DEXAMETHASONE
     Indication: PRODUCT USED FOR UNKNOWN INDICATION
     Route: 065
     Dates: start: 200306

REACTIONS (13)
  - Multiple fractures [Recovered/Resolved]
  - Fatigue [Unknown]
  - Heart rate irregular [Unknown]
  - Hypersomnia [Unknown]
  - Rotator cuff syndrome [Unknown]
  - Glaucoma [Recovered/Resolved]
  - Blood glucose increased [Unknown]
  - Dysphonia [Unknown]
  - Arthropathy [Unknown]
  - Flushing [Unknown]
  - Anger [Unknown]
  - Hiccups [Unknown]
  - Neoplasm malignant [Recovered/Resolved]

NARRATIVE: CASE EVENT DATE: 2003
